FAERS Safety Report 6913967-4 (Version None)
Quarter: 2010Q3

REPORT INFORMATION
  Report Type: 
  Country: None (occurrence: None)
  Receive Date: 20100809
  Receipt Date: 20100805
  Transmission Date: 20110219
  Serious: Yes (Other)
  Sender: FDA-Public Use
  Company Number: CZ-AMGEN-KDC426117

PATIENT
  Sex: Male

DRUGS (4)
  1. DENOSUMAB [Suspect]
     Indication: METASTASES TO BONE
     Route: 058
     Dates: start: 20100311
  2. FORTECORTIN [Concomitant]
     Route: 048
     Dates: start: 20090524
  3. TAXOTERE [Concomitant]
     Route: 042
     Dates: start: 20090528
  4. DIABETIC MEDICATION NOS [Concomitant]

REACTIONS (1)
  - OSTEONECROSIS OF JAW [None]
